FAERS Safety Report 8337752-4 (Version None)
Quarter: 2012Q2

REPORT INFORMATION
  Report Type: 
  Country: None (occurrence: None)
  Receive Date: 20120504
  Receipt Date: 20120426
  Transmission Date: 20120825
  Serious: Yes (Other)
  Sender: FDA-Public Use
  Company Number: JP-FRI-1000029975

PATIENT
  Sex: Female

DRUGS (8)
  1. PHENOBARBITAL TAB [Concomitant]
     Route: 048
     Dates: start: 20120103
  2. HANGE-KOBOKU-TO [Concomitant]
     Dosage: 3 DF
     Route: 048
     Dates: start: 20120104
  3. ALPRAZOLAM [Concomitant]
     Dosage: 1.2 MG
     Route: 048
  4. ROHYPNOL [Concomitant]
     Dosage: 2 MG
     Route: 048
     Dates: start: 20120104
  5. CHLORPROMAZINE HCL [Concomitant]
     Route: 048
  6. DOGMATYL [Concomitant]
     Dosage: 150 MG
     Route: 048
  7. LEXAPRO [Suspect]
     Dosage: 10 MG
     Route: 048
     Dates: start: 20120119, end: 20120203
  8. BROMOVALERYLUREA [Concomitant]
     Dosage: 0.3 MG
     Route: 048

REACTIONS (2)
  - JAUNDICE [None]
  - HEPATIC FUNCTION ABNORMAL [None]
